FAERS Safety Report 18393715 (Version 3)
Quarter: 2022Q1

REPORT INFORMATION
  Report Type: Spontaneous
  Country: US (occurrence: US)
  Receive Date: 20201016
  Receipt Date: 20220328
  Transmission Date: 20220424
  Serious: Yes (Hospitalization, Other)
  Sender: FDA-Public Use
  Company Number: US-GILEAD-2020-0498983

PATIENT
  Age: 68 Year
  Sex: Female

DRUGS (4)
  1. REMDESIVIR [Suspect]
     Active Substance: REMDESIVIR
     Indication: COVID-19 pneumonia
     Dosage: 200 MG, LOADING DOSE (D8)
     Route: 042
  2. REMDESIVIR [Suspect]
     Active Substance: REMDESIVIR
     Dosage: 100 MG, MAINTENANCE (D9)
     Route: 042
  3. AMIODARONE [Suspect]
     Active Substance: AMIODARONE
     Indication: Atrial fibrillation
     Dosage: 150 MG LOADING DOSE, FOLLOWED BY 6 HOURS OF 1.0 MG/MIN, FOLLOWED BYMAINTENANCE DOSING  0.5 MG/MIN
     Route: 042
  4. NITROGLYCERIN [Concomitant]
     Active Substance: NITROGLYCERIN
     Route: 042

REACTIONS (1)
  - Acute hepatic failure [Recovered/Resolved]

NARRATIVE: CASE EVENT DATE: 20200101
